FAERS Safety Report 5505278-9 (Version None)
Quarter: 2007Q4

REPORT INFORMATION
  Report Type: 
  Country: None (occurrence: None)
  Receive Date: 20071102
  Receipt Date: 20071025
  Transmission Date: 20080405
  Serious: Yes (Other)
  Sender: FDA-Public Use
  Company Number: US-JNJFOC-20071007386

PATIENT
  Age: 61 Year
  Sex: Male
  Weight: 83.01 kg

DRUGS (3)
  1. LEVAQUIN [Suspect]
     Indication: PYREXIA
     Route: 048
  2. LISINOPRIL [Concomitant]
     Route: 065
  3. LEVOTHYROXINE SODIUM [Concomitant]
     Route: 065

REACTIONS (1)
  - HEMIPLEGIA [None]
